FAERS Safety Report 9337153 (Version 2)
Quarter: 2013Q2

REPORT INFORMATION
  Report Type: Spontaneous
  Country: US (occurrence: US)
  Receive Date: 20130607
  Receipt Date: 20130607
  Transmission Date: 20140414
  Serious: Yes (Hospitalization)
  Sender: FDA-Public Use
  Company Number: US-SP-2013-03867

PATIENT
  Sex: Male

DRUGS (18)
  1. TUBERSOL [Suspect]
     Indication: TUBERCULIN TEST
     Route: 065
     Dates: start: 20130203, end: 20130203
  2. TUBERSOL [Suspect]
     Indication: TUBERCULIN TEST
     Route: 065
     Dates: start: 20130207, end: 20130207
  3. ASPIRIN [Concomitant]
     Route: 048
  4. NEXIUM [Concomitant]
     Route: 048
  5. LOPRESSOR [Concomitant]
     Route: 048
  6. PRAVACHOL [Concomitant]
     Route: 048
  7. NITROGLYCERIN [Concomitant]
     Route: 061
  8. METOCLOPRAMIDE [Concomitant]
     Route: 048
  9. ROPINIROLE [Concomitant]
     Route: 048
  10. TRICOR [Concomitant]
     Route: 048
  11. ACETAMINOPHEN [Concomitant]
     Route: 048
  12. THIORIDAZINE [Concomitant]
     Route: 048
  13. THIORIDAZINE [Concomitant]
     Route: 048
  14. QUETIAPINE FUMARATE [Concomitant]
     Route: 048
  15. PATADAY [Concomitant]
     Route: 050
  16. LOPERAMIDE [Concomitant]
     Route: 048
  17. AVODART [Concomitant]
     Route: 048
  18. CELEBREX [Concomitant]
     Route: 048

REACTIONS (5)
  - False positive tuberculosis test [Unknown]
  - Injection site inflammation [Not Recovered/Not Resolved]
  - Erythema [Not Recovered/Not Resolved]
  - Injection site induration [Not Recovered/Not Resolved]
  - Dyspnoea [Not Recovered/Not Resolved]
